FAERS Safety Report 7634332-0 (Version None)
Quarter: 2011Q3

REPORT INFORMATION
  Report Type: 
  Country: None (occurrence: None)
  Receive Date: 20110725
  Receipt Date: 20101222
  Transmission Date: 20111222
  Serious: No
  Sender: FDA-Public Use
  Company Number: US-MYLANLABS-2010S1023489

PATIENT
  Age: 50 Year
  Sex: Male
  Weight: 99.79 kg

DRUGS (10)
  1. LEVOTHYROXINE SODIUM [Concomitant]
     Indication: HYPOTHYROIDISM
     Dates: start: 20100801
  2. KLONOPIN [Concomitant]
     Indication: ANXIETY
     Dates: start: 20070101
  3. LIPITOR [Concomitant]
     Indication: BLOOD CHOLESTEROL INCREASED
     Dates: start: 20050101
  4. FIORICET [Concomitant]
     Indication: MIGRAINE
     Dates: start: 20000101
  5. TOPROL-XL [Concomitant]
     Indication: HYPERTENSION
     Dates: start: 20070101
  6. BUSPIRONE HCL [Suspect]
     Route: 048
     Dates: start: 20101001, end: 20101221
  7. LEXAPRO [Concomitant]
     Indication: DEPRESSION
     Dates: start: 20080101
  8. FLOMAX [Concomitant]
     Indication: BENIGN PROSTATIC HYPERPLASIA
     Dates: start: 20060101
  9. BUSPIRONE HCL [Suspect]
     Indication: ANXIETY
     Route: 048
     Dates: start: 20100801
  10. NEXIUM [Concomitant]
     Indication: GASTROOESOPHAGEAL REFLUX DISEASE

REACTIONS (4)
  - DIZZINESS [None]
  - DRUG DISPENSING ERROR [None]
  - NAUSEA [None]
  - FLATULENCE [None]
